FAERS Safety Report 9851716 (Version 1)
Quarter: 2014Q1

REPORT INFORMATION
  Report Type: Report from Study
  Country: US (occurrence: US)
  Receive Date: 20140129
  Receipt Date: 20140129
  Transmission Date: 20141002
  Serious: Yes (Other)
  Sender: FDA-Public Use
  Company Number: US-ROCHE-1312765

PATIENT
  Age: 83 Year
  Sex: Female
  Weight: 54.03 kg

DRUGS (14)
  1. LUCENTIS [Suspect]
     Indication: RETINAL VEIN OCCLUSION
     Dosage: INJECT 0.5 MG (0.05 ML).   SHE RECEIVED RANIBIZUAMB IN LEFT EYE 22/JUN/2011, 05/OCT/2011, 04/NOV/201
     Route: 050
     Dates: start: 20110622
  2. LUCENTIS [Suspect]
     Indication: RETINAL OEDEMA
     Dosage: DOSE RECEIVED ON 27/APR/2012.  INJECT 0.5 MG (0.05 ML)
     Route: 050
  3. LUCENTIS [Suspect]
     Indication: VENOUS OCCLUSION
  4. AVASTIN [Suspect]
     Indication: PRODUCT USED FOR UNKNOWN INDICATION
     Dosage: THE PATIENT RECEIVED BEVACIZUMAB DOSE ON 16/JUN/2006, 24/JUL/2006, 18/AUG/2006,09/NOV/2009, 26/MAR/2
     Route: 042
     Dates: start: 20060616
  5. ALPHAGAN [Concomitant]
     Dosage: 1 DROP TWICE A DAY
     Route: 065
  6. COSOPT [Concomitant]
     Dosage: 1 OPHTHAMIC DROP TWICE A DAY
     Route: 065
  7. LUMIGAN [Concomitant]
     Dosage: 1 DROP AT BEDTIME
     Route: 065
  8. SYSTANE [Concomitant]
     Dosage: AS NEEDED
     Route: 065
  9. AMLODIPINE [Concomitant]
     Route: 048
  10. ASPIRIN [Concomitant]
     Dosage: 81
     Route: 065
  11. METOPROLOL SUCCINATE [Concomitant]
     Route: 048
  12. OMEGA 3 [Concomitant]
  13. PLAVIX [Concomitant]
     Route: 048
  14. NITROGLYCERIN [Concomitant]

REACTIONS (7)
  - Macular oedema [Unknown]
  - Visual acuity reduced [Unknown]
  - Cardiac disorder [Unknown]
  - Retinal vein occlusion [Unknown]
  - Dry eye [Unknown]
  - Pollakiuria [Unknown]
  - Micturition urgency [Unknown]
